FAERS Safety Report 9611837 (Version 2)
Quarter: 2013Q4

REPORT INFORMATION
  Report Type: Report from Study
  Country: MX (occurrence: MX)
  Receive Date: 20131010
  Receipt Date: 20131010
  Transmission Date: 20140711
  Serious: Yes (Other)
  Sender: FDA-Public Use
  Company Number: PHHY2013MX053205

PATIENT
  Age: 30 Year
  Sex: Female

DRUGS (5)
  1. ONBREZ [Suspect]
     Indication: ASTHMA
     Dosage: 1 DF, QD
     Dates: start: 2010
  2. ONBREZ [Suspect]
     Indication: OFF LABEL USE
     Dosage: UNK UKN, UNK
     Dates: end: 20130517
  3. ONBREZ [Suspect]
     Dosage: UNK UKN, UNK
     Dates: start: 20130527
  4. SALBUTAMOL [Concomitant]
     Indication: ASTHMA
  5. FLIXOTIDE [Concomitant]
     Indication: ASTHMA
     Dosage: 2 SHOTS MORNING/2 SHOTS NIGHT

REACTIONS (11)
  - Asthma [Unknown]
  - Dyspnoea [Unknown]
  - Cough [Unknown]
  - Chest pain [Unknown]
  - Influenza [Unknown]
  - Back pain [Unknown]
  - Gestational diabetes [Unknown]
  - Urinary tract infection [Recovered/Resolved]
  - Maternal exposure during pregnancy [Unknown]
  - Delivery [Unknown]
  - Normal newborn [Unknown]
